FAERS Safety Report 5130639-X (Version None)
Quarter: 2006Q4

REPORT INFORMATION
  Report Type: 
  Country: None (occurrence: None)
  Receive Date: 20061017
  Receipt Date: 20061017
  Transmission Date: 20070319
  Serious: Yes (Life-Threatening, Hospitalization)
  Sender: FDA-Public Use
  Company Number: None

PATIENT
  Age: 58 Year
  Sex: Male
  Weight: 67.8 kg

DRUGS (1)
  1. QUETIAPINE FUMARATE [Suspect]
     Indication: AGGRESSION
     Dosage: 50 MG PO Q6PM
     Route: 048
     Dates: start: 20060612, end: 20060615

REACTIONS (5)
  - AGGRESSION [None]
  - AGITATION [None]
  - DISORIENTATION [None]
  - DRUG HYPERSENSITIVITY [None]
  - NEUROLEPTIC MALIGNANT SYNDROME [None]
